APPROVED DRUG PRODUCT: PROTONIX
Active Ingredient: PANTOPRAZOLE SODIUM
Strength: EQ 20MG BASE
Dosage Form/Route: TABLET, DELAYED RELEASE;ORAL
Application: N020987 | Product #002 | TE Code: AB
Applicant: WYETH PHARMACEUTICALS LLC
Approved: Jun 12, 2001 | RLD: Yes | RS: No | Type: RX